FAERS Safety Report 18946092 (Version 1)
Quarter: 2021Q1

REPORT INFORMATION
  Report Type: Spontaneous
  Country: US (occurrence: US)
  Receive Date: 20210226
  Receipt Date: 20210226
  Transmission Date: 20210420
  Serious: No
  Sender: FDA-Public Use
  Company Number: US-GLAXOSMITHKLINE-US2021AMR053955

PATIENT
  Sex: Female

DRUGS (1)
  1. ZEJULA [Suspect]
     Active Substance: NIRAPARIB
     Dosage: 200 MG, QD
     Dates: start: 20190416

REACTIONS (4)
  - Arthritis [Unknown]
  - Visual impairment [Unknown]
  - Magnetic resonance imaging abnormal [Unknown]
  - Hypoaesthesia [Unknown]
